FAERS Safety Report 7952583-2 (Version None)
Quarter: 2011Q4

REPORT INFORMATION
  Report Type: 
  Country: None (occurrence: None)
  Receive Date: 20111201
  Receipt Date: 20111122
  Transmission Date: 20120403
  Serious: Yes (Other)
  Sender: FDA-Public Use
  Company Number: JP-SANOFI-AVENTIS-2011SA071642

PATIENT
  Age: 85 Year
  Sex: Male

DRUGS (2)
  1. ZOLPIDEM [Suspect]
     Route: 048
     Dates: start: 20110801, end: 20110910
  2. MEMANTINE HYDROCHLORIDE [Suspect]
     Route: 048
     Dates: start: 20110801, end: 20110910

REACTIONS (1)
  - RHABDOMYOLYSIS [None]
